FAERS Safety Report 4304300-5 (Version None)
Quarter: 2004Q1

REPORT INFORMATION
  Report Type: 
  Country: None (occurrence: None)
  Receive Date: 20040223
  Receipt Date: 20040218
  Transmission Date: 20041129
  Serious: Yes (Death)
  Sender: FDA-Public Use
  Company Number: DEWYE589818FEB04

PATIENT
  Sex: Female

DRUGS (2)
  1. VENLAFAXINE HCL [Suspect]
     Dosage: (HIGH DOSES) ORAL
     Route: 048
  2. SEROQUEL [Suspect]
     Dosage: (HIGH DOSES) ORAL
     Route: 048

REACTIONS (2)
  - HYPERLIPIDAEMIA [None]
  - MULTI-ORGAN FAILURE [None]
